FAERS Safety Report 24283073 (Version 1)
Quarter: 2024Q3

REPORT INFORMATION
  Report Type: Spontaneous
  Country: US (occurrence: None)
  Receive Date: 20240903
  Receipt Date: 20240903
  Transmission Date: 20241017
  Serious: Yes (Hospitalization)
  Sender: Public
  Company Number: None

PATIENT
  Age: 30 Year
  Sex: Female
  Weight: 77.11 kg

DRUGS (1)
  1. MIRENA [Suspect]
     Active Substance: LEVONORGESTREL

REACTIONS (11)
  - Abdominal pain [None]
  - Anxiety [None]
  - Panic attack [None]
  - Major depression [None]
  - Muscle spasms [None]
  - Suicidal ideation [None]
  - Complication associated with device [None]
  - Headache [None]
  - Back pain [None]
  - Brain fog [None]
  - Palpitations [None]
